FAERS Safety Report 20340673 (Version 1)
Quarter: 2022Q1

REPORT INFORMATION
  Report Type: Spontaneous
  Country: US (occurrence: None)
  Receive Date: 20220117
  Receipt Date: 20220117
  Transmission Date: 20220423
  Serious: Yes (Death, Other)
  Sender: FDA-Public Use
  Company Number: US-Hikma Pharmaceuticals USA Inc.-US-H14001-22-00184

PATIENT
  Sex: Male
  Weight: 112.67 kg

DRUGS (2)
  1. DEXRAZOXANE [Suspect]
     Active Substance: DEXRAZOXANE
     Indication: Product used for unknown indication
     Dosage: UNKNOWN
     Route: 065
     Dates: start: 20201203
  2. DEXRAZOXANE [Suspect]
     Active Substance: DEXRAZOXANE
     Dosage: UNKNOWN
     Route: 065
     Dates: start: 20201203

REACTIONS (2)
  - Illness [Unknown]
  - Death [Fatal]
